FAERS Safety Report 16645800 (Version 1)
Quarter: 2019Q3

REPORT INFORMATION
  Report Type: Spontaneous
  Country: US (occurrence: US)
  Receive Date: 20190730
  Receipt Date: 20190730
  Transmission Date: 20191004
  Serious: No
  Sender: FDA-Public Use
  Company Number: US-009507513-1907USA015406

PATIENT
  Age: 53 Year
  Sex: Female

DRUGS (4)
  1. FAMOTIDINE. [Concomitant]
     Active Substance: FAMOTIDINE
     Indication: IMMUNE TOLERANCE INDUCTION
     Dosage: 20 MILLIGRAM
     Route: 048
  2. IBUPROFEN. [Concomitant]
     Active Substance: IBUPROFEN
     Indication: IMMUNE TOLERANCE INDUCTION
     Dosage: 400 MILLIGRAM
     Route: 042
  3. SINGULAIR [Suspect]
     Active Substance: MONTELUKAST SODIUM
     Indication: IMMUNE TOLERANCE INDUCTION
     Dosage: 10 MILLIGRAM
     Route: 048
  4. CETIRIZINE HYDROCHLORIDE. [Concomitant]
     Active Substance: CETIRIZINE HYDROCHLORIDE
     Indication: IMMUNE TOLERANCE INDUCTION
     Dosage: 10 MILLIGRAM
     Route: 048

REACTIONS (1)
  - Off label use [Unknown]
